FAERS Safety Report 10589180 (Version 1)
Quarter: 2014Q4

REPORT INFORMATION
  Report Type: Spontaneous
  Country: US (occurrence: US)
  Receive Date: 20141118
  Receipt Date: 20141118
  Transmission Date: 20150529
  Serious: Yes (Hospitalization, Other)
  Sender: FDA-Public Use
  Company Number: US-AMGEN-USASP2014087930

PATIENT
  Age: 42 Year
  Sex: Male

DRUGS (3)
  1. ENBREL [Suspect]
     Active Substance: ETANERCEPT
     Indication: PSORIASIS
  2. ENBREL [Suspect]
     Active Substance: ETANERCEPT
     Indication: PSORIATIC ARTHROPATHY
     Dosage: 50 MG, QWK
     Route: 065
     Dates: start: 20120715, end: 2014
  3. BIAXIN [Suspect]
     Active Substance: CLARITHROMYCIN
     Indication: KIDNEY INFECTION
     Dosage: UNK
     Route: 065

REACTIONS (8)
  - Nasopharyngitis [Unknown]
  - Nephrolithiasis [Recovered/Resolved]
  - Hypertension [Recovered/Resolved]
  - Kidney infection [Recovered/Resolved]
  - Treatment failure [Recovered/Resolved]
  - Stomatitis [Not Recovered/Not Resolved]
  - Oral infection [Not Recovered/Not Resolved]
  - Infection [Not Recovered/Not Resolved]

NARRATIVE: CASE EVENT DATE: 2012
